FAERS Safety Report 17652970 (Version 4)
Quarter: 2020Q2

REPORT INFORMATION
  Report Type: Report from Study
  Country: US (occurrence: US)
  Receive Date: 20200409
  Receipt Date: 20200624
  Transmission Date: 20200713
  Serious: No
  Sender: FDA-Public Use
  Company Number: NVSC2020US096552

PATIENT
  Sex: Male

DRUGS (1)
  1. COSENTYX [Suspect]
     Active Substance: SECUKINUMAB
     Indication: PRODUCT USED FOR UNKNOWN INDICATION
     Dosage: UNK
     Route: 065

REACTIONS (5)
  - Skin plaque [Recovering/Resolving]
  - Product preparation error [Recovering/Resolving]
  - Injection site pain [Recovering/Resolving]
  - Pruritus [Recovered/Resolved]
  - Poor quality product administered [Recovering/Resolving]
